FAERS Safety Report 14411319 (Version 2)
Quarter: 2018Q1

REPORT INFORMATION
  Report Type: Report from Study
  Country: JP (occurrence: JP)
  Receive Date: 20180119
  Receipt Date: 20180226
  Transmission Date: 20180509
  Serious: Yes (Hospitalization, Other)
  Sender: FDA-Public Use
  Company Number: JP-BRISTOL-MYERS SQUIBB COMPANY-BMS-2018-004432

PATIENT
  Age: 59 Year
  Sex: Male

DRUGS (1)
  1. NIVOLUMAB [Suspect]
     Active Substance: NIVOLUMAB
     Indication: HEAD AND NECK CANCER
     Dosage: 3 MG/KG, UNK
     Route: 041
     Dates: start: 20170421, end: 20170711

REACTIONS (4)
  - Laryngeal obstruction [Recovered/Resolved with Sequelae]
  - Diarrhoea [Recovering/Resolving]
  - Laryngitis [Recovered/Resolved with Sequelae]
  - Muscular weakness [Not Recovered/Not Resolved]

NARRATIVE: CASE EVENT DATE: 20170529
